FAERS Safety Report 8885019 (Version 6)
Quarter: 2013Q3

REPORT INFORMATION
  Report Type: Report from Study
  Country: US (occurrence: US)
  Receive Date: 20121102
  Receipt Date: 20130705
  Transmission Date: 20140515
  Serious: Yes (Life-Threatening, Hospitalization)
  Sender: FDA-Public Use
  Company Number: US-ACTELION-A-NJ2012-62042

PATIENT
  Age: 61 Year
  Sex: Male

DRUGS (5)
  1. VELETRI [Suspect]
     Indication: PULMONARY ARTERIAL HYPERTENSION
     Dosage: 35.5 NG/L, UNK
     Route: 041
     Dates: start: 201210
  2. VELETRI [Suspect]
     Dosage: 16 NG/KG, PER MIN
     Route: 041
     Dates: start: 20120203, end: 2012
  3. VELETRI [Suspect]
     Dosage: 37.5 NG/KG, UNK
     Route: 041
     Dates: start: 2012, end: 201210
  4. COUMADIN [Concomitant]
  5. LETAIRIS [Concomitant]

REACTIONS (13)
  - Weight decreased [Recovered/Resolved]
  - Decreased appetite [Recovered/Resolved]
  - Erythema [Recovering/Resolving]
  - Rash [Recovering/Resolving]
  - Dyspnoea [Unknown]
  - Oedema [Recovered/Resolved]
  - Thrombosis in device [Recovered/Resolved]
  - Convulsion [Recovered/Resolved]
  - Hypoxia [Recovered/Resolved]
  - Hypotension [Recovered/Resolved]
  - Pain in jaw [Unknown]
  - Flushing [Unknown]
  - Dyspnoea exertional [Unknown]
